FAERS Safety Report 13164726 (Version 1)
Quarter: 2017Q1

REPORT INFORMATION
  Report Type: Report from Study
  Country: US (occurrence: US)
  Receive Date: 20170130
  Receipt Date: 20170130
  Transmission Date: 20170428
  Serious: Yes (Other)
  Sender: FDA-Public Use
  Company Number: US-ELI_LILLY_AND_COMPANY-US201411001001

PATIENT
  Sex: Male

DRUGS (4)
  1. RAMIPRIL. [Concomitant]
     Active Substance: RAMIPRIL
     Indication: BLOOD PRESSURE MEASUREMENT
     Dosage: UNK, UNKNOWN
     Route: 065
  2. CYMBALTA [Suspect]
     Active Substance: DULOXETINE HYDROCHLORIDE
     Indication: FIBROMYALGIA
     Dosage: UNK, UNKNOWN
     Route: 065
     Dates: start: 2014, end: 2014
  3. CYMBALTA [Suspect]
     Active Substance: DULOXETINE HYDROCHLORIDE
     Indication: FIBROMYALGIA
     Dosage: 30 MG, QD
     Route: 048
     Dates: start: 20110911
  4. CELEBREX [Concomitant]
     Active Substance: CELECOXIB
     Indication: PAIN
     Dosage: UNK, UNKNOWN
     Route: 065

REACTIONS (21)
  - Confusional state [Unknown]
  - Fatigue [Unknown]
  - Anxiety [Unknown]
  - Headache [Unknown]
  - Paraesthesia [Unknown]
  - Feeling abnormal [Unknown]
  - Lethargy [Unknown]
  - Hypomania [Unknown]
  - Irritability [Unknown]
  - Diarrhoea [Unknown]
  - Tinnitus [Unknown]
  - Nightmare [Unknown]
  - Dizziness [Unknown]
  - Nausea [Unknown]
  - Sensory disturbance [Unknown]
  - Withdrawal syndrome [Unknown]
  - Dysphoria [Unknown]
  - Affect lability [Unknown]
  - Vertigo [Unknown]
  - Insomnia [Unknown]
  - Agitation [Unknown]
